FAERS Safety Report 9958287 (Version 2)
Quarter: 2014Q1

REPORT INFORMATION
  Report Type: Report from Study
  Country: PR (occurrence: PR)
  Receive Date: 20140304
  Receipt Date: 20140304
  Transmission Date: 20141002
  Serious: No
  Sender: FDA-Public Use
  Company Number: PR-ABBVIE-13P-131-1082043-00

PATIENT
  Age: 68 Year
  Sex: Female
  Weight: 63.56 kg

DRUGS (11)
  1. HUMIRA [Suspect]
     Indication: RHEUMATOID ARTHRITIS
     Route: 058
     Dates: start: 201203, end: 201209
  2. HUMIRA [Suspect]
     Route: 058
     Dates: start: 20121017, end: 201304
  3. HUMIRA [Suspect]
     Route: 058
     Dates: start: 20130515
  4. SYNTHROID [Concomitant]
     Indication: THYROID DISORDER
     Route: 048
  5. FOLIC ACID [Concomitant]
     Indication: PRODUCT USED FOR UNKNOWN INDICATION
     Route: 048
  6. ASPIRIN [Concomitant]
     Indication: INFARCTION
     Route: 048
     Dates: start: 1997
  7. LIPITOR [Concomitant]
     Indication: HYPERCHOLESTEROLAEMIA
     Route: 048
  8. METHOTREXATE [Concomitant]
     Indication: RHEUMATOID ARTHRITIS
     Dosage: 5 TABLETS WEEKLY
     Route: 048
     Dates: start: 2011
  9. PLAVIX [Concomitant]
     Indication: INFARCTION
     Route: 048
     Dates: start: 201209
  10. NORVASC [Concomitant]
     Indication: HYPERTENSION
     Route: 048
  11. COREG [Concomitant]
     Indication: INFARCTION
     Route: 048
     Dates: start: 201209

REACTIONS (2)
  - Cough [Recovering/Resolving]
  - Back pain [Not Recovered/Not Resolved]
